FAERS Safety Report 15215984 (Version 1)
Quarter: 2018Q3

REPORT INFORMATION
  Report Type: Spontaneous
  Country: US (occurrence: US)
  Receive Date: 20180730
  Receipt Date: 20180730
  Transmission Date: 20181010
  Serious: No
  Sender: FDA-Public Use
  Company Number: US-BAYER-2018-140001

PATIENT
  Age: 61 Year
  Sex: Male
  Weight: 97.96 kg

DRUGS (1)
  1. MIRALAX [Suspect]
     Active Substance: POLYETHYLENE GLYCOL 3350
     Indication: GASTROINTESTINAL DISORDER
     Dosage: UNK UNK, ONCE
     Route: 048
     Dates: start: 20180724, end: 20180724

REACTIONS (1)
  - Product use issue [Unknown]
